FAERS Safety Report 22124248 (Version 1)
Quarter: 2023Q1

REPORT INFORMATION
  Report Type: Report from Study
  Country: MX (occurrence: MX)
  Receive Date: 20230322
  Receipt Date: 20230322
  Transmission Date: 20230417
  Serious: Yes (Other)
  Sender: FDA-Public Use
  Company Number: MX-002147023-NVSC2023MX063126

PATIENT
  Sex: Female
  Weight: 68 kg

DRUGS (4)
  1. EXFORGE [Suspect]
     Active Substance: AMLODIPINE BESYLATE\VALSARTAN
     Indication: Blood pressure abnormal
     Dosage: 1 DOSAGE FORM, QD (5/160MG)
     Route: 048
     Dates: start: 2018, end: 202212
  2. TELMISARTAN [Suspect]
     Active Substance: TELMISARTAN
     Indication: Product used for unknown indication
     Dosage: 80 MG (IN THE MORNING)
     Route: 065
  3. TELMISARTAN [Suspect]
     Active Substance: TELMISARTAN
     Dosage: 40 MG (AT NIGHT)
     Route: 065
  4. BISOPROLOL [Suspect]
     Active Substance: BISOPROLOL
     Indication: Blood pressure abnormal
     Dosage: 0.5 DOSAGE FORM, QD (2.50MG)
     Route: 048
     Dates: start: 202212

REACTIONS (4)
  - Blood pressure fluctuation [Unknown]
  - Bone disorder [Unknown]
  - Bone pain [Unknown]
  - Drug ineffective [Unknown]
